FAERS Safety Report 17611147 (Version 1)
Quarter: 2020Q2

REPORT INFORMATION
  Report Type: Report from Study
  Country: ES (occurrence: ES)
  Receive Date: 20200401
  Receipt Date: 20200401
  Transmission Date: 20200713
  Serious: Yes (Other)
  Sender: FDA-Public Use
  Company Number: ES-MYLANLABS-2020M1032197

PATIENT
  Age: 62 Year
  Sex: Female

DRUGS (2)
  1. FULVESTRANT. [Suspect]
     Active Substance: FULVESTRANT
     Indication: BREAST CANCER METASTATIC
     Dosage: UNK
     Dates: start: 201510, end: 201707
  2. PALBOCICLIB [Suspect]
     Active Substance: PALBOCICLIB
     Indication: BREAST CANCER METASTATIC
     Dosage: 125 MG, CYCLIC (21 DAYS AND 1 WEEK OFF)
     Route: 048
     Dates: start: 201510, end: 201707

REACTIONS (5)
  - Conjunctivitis [Unknown]
  - Keratitis [Unknown]
  - Anaemia [Unknown]
  - Respiratory tract infection [Unknown]
  - Neutropenia [Unknown]
